FAERS Safety Report 18840347 (Version 1)
Quarter: 2021Q1

REPORT INFORMATION
  Report Type: Spontaneous
  Country: US (occurrence: US)
  Receive Date: 20210204
  Receipt Date: 20210204
  Transmission Date: 20210419
  Serious: No
  Sender: FDA-Public Use
  Company Number: US-EPICPHARMA-US-2021EPCSPO00057

PATIENT
  Sex: Male

DRUGS (1)
  1. MECLIZINE HCL [Suspect]
     Active Substance: MECLIZINE HYDROCHLORIDE
     Indication: DIZZINESS
     Route: 048

REACTIONS (5)
  - Therapy cessation [Unknown]
  - Drug ineffective [Unknown]
  - Condition aggravated [Unknown]
  - Back pain [Unknown]
  - Body temperature decreased [Unknown]
